FAERS Safety Report 4427309-X (Version None)
Quarter: 2004Q3

REPORT INFORMATION
  Report Type: 
  Country: None (occurrence: None)
  Receive Date: 20040811
  Receipt Date: 20040727
  Transmission Date: 20050211
  Serious: Yes (Other)
  Sender: FDA-Public Use
  Company Number: 2004-BP-06121RO

PATIENT
  Age: 82 Year
  Sex: Male

DRUGS (4)
  1. FUROSEMIDE [Suspect]
  2. COVERSYL (PERINDOPRIL) [Suspect]
     Indication: CARDIAC FAILURE ACUTE
     Dosage: 2 MG TID (3 IN 1 D),
     Dates: start: 20040121
  3. DICLOFENAC (DICLOFENAC) [Suspect]
     Dates: end: 20040122
  4. ASPIRIN [Suspect]
     Dates: end: 20040122

REACTIONS (1)
  - RENAL FAILURE ACUTE [None]
